FAERS Safety Report 5609179-7 (Version None)
Quarter: 2008Q1

REPORT INFORMATION
  Report Type: 
  Country: None (occurrence: None)
  Receive Date: 20080131
  Receipt Date: 20080125
  Transmission Date: 20080703
  Serious: Yes (Hospitalization)
  Sender: FDA-Public Use
  Company Number: PHHO2007DE11451

PATIENT
  Age: 75 Year
  Sex: Female
  Weight: 78 kg

DRUGS (23)
  1. ZOLEDRONIC ACID [Suspect]
     Indication: OSTEOPOROSIS
     Dosage: 5 MG, ONCE YEARLY
     Route: 042
     Dates: start: 20070111
  2. OMEPRAZOLE [Concomitant]
  3. LORZAAR PLUS [Concomitant]
  4. AMLODIPINE [Concomitant]
  5. EUTHYROX [Concomitant]
  6. ASPIRIN [Concomitant]
  7. LOCOL [Concomitant]
  8. MELPERON [Concomitant]
  9. CLONAZEPAM [Concomitant]
  10. MAGNESIUM VERLA [Concomitant]
  11. DICLOFENAC [Concomitant]
  12. LIDOCAIN [Concomitant]
  13. AMBENE FOR INJECTION [Concomitant]
  14. PIROXICAM ^RATIOPHARM^ [Concomitant]
  15. DICLOFENAC ^RATIOPHARM^ [Concomitant]
  16. TRIAM [Concomitant]
  17. CARBAMAZEPINE [Concomitant]
     Indication: TRIGEMINAL NEURALGIA
     Dosage: 150MG
     Route: 048
  18. CARBAMAZEPINE [Concomitant]
     Dosage: 300 MG, QD
     Route: 048
     Dates: start: 20070326
  19. CARBAMAZEPINE [Concomitant]
     Dosage: 300 MG, BID
     Route: 048
  20. LYRICA [Suspect]
     Indication: TRIGEMINAL NEURALGIA
     Dosage: 75MG X 2
     Route: 048
  21. LYRICA [Suspect]
     Dosage: 75 MG, TID
     Route: 048
     Dates: start: 20040101
  22. LYRICA [Suspect]
     Dosage: 150 MG, TID
     Route: 048
  23. CALCIVIT D [Concomitant]

REACTIONS (7)
  - ACCIDENTAL OVERDOSE [None]
  - DISEASE PROGRESSION [None]
  - NAUSEA [None]
  - TRIGEMINAL NEURALGIA [None]
  - VERTIGO [None]
  - VESTIBULAR DISORDER [None]
  - VOMITING [None]
